FAERS Safety Report 4934837-7 (Version None)
Quarter: 2006Q1

REPORT INFORMATION
  Report Type: 
  Country: None (occurrence: None)
  Receive Date: 20060303
  Receipt Date: 20060216
  Transmission Date: 20060701
  Serious: Yes (Death)
  Sender: FDA-Public Use
  Company Number: 213333

PATIENT
  Age: 56 Year
  Sex: Male
  Weight: 90 kg

DRUGS (8)
  1. BEVACIZUMAB OR PLACEBO (BEVACIZUMAB)PWDR + SOLVENT, INFUSION SOLN, 100 [Suspect]
     Indication: COLORECTAL CANCER METASTATIC
     Dosage: 7.5 MG/KG, Q3W, INTRAVENOUS
     Route: 042
     Dates: start: 20040824, end: 20050317
  2. CAPECITABINE (CAPECITABINE) [Suspect]
     Indication: COLORECTAL CANCER METASTATIC
     Dosage: 1000 MG/M2, BID, ORAL
     Route: 048
     Dates: start: 20040824, end: 20050316
  3. OXALIPLATIN (OXALIPLATIN) [Suspect]
     Indication: COLORECTAL CANCER METASTATIC
     Dosage: 130 MG/M2, Q3W, INTRAVENOUS
     Route: 042
     Dates: start: 20040824, end: 20050317
  4. WARFARIN SODIUM [Concomitant]
  5. MULTIVITAMIN [Concomitant]
  6. GRANISETRON  HCL [Concomitant]
  7. DEXAMETHASONE TAB [Concomitant]
  8. ZOPICLONE [Concomitant]

REACTIONS (6)
  - ARRHYTHMIA [None]
  - ASPARTATE AMINOTRANSFERASE INCREASED [None]
  - BLOOD LACTATE DEHYDROGENASE INCREASED [None]
  - CARDIOMEGALY [None]
  - HAEMOGLOBIN INCREASED [None]
  - WHITE BLOOD CELL COUNT DECREASED [None]
